FAERS Safety Report 4746313-5 (Version None)
Quarter: 2005Q3

REPORT INFORMATION
  Report Type: 
  Country: None (occurrence: None)
  Receive Date: 20050815
  Receipt Date: 20050801
  Transmission Date: 20060218
  Serious: Yes (Hospitalization)
  Sender: FDA-Public Use
  Company Number: GBS050617708

PATIENT
  Age: 13 Year
  Sex: Male
  Weight: 62 kg

DRUGS (1)
  1. STRATTERA [Suspect]
     Indication: ATTENTION DEFICIT/HYPERACTIVITY DISORDER
     Dosage: 60 MG DAY
     Dates: start: 20050614, end: 20050622

REACTIONS (3)
  - HAEMATURIA [None]
  - HEADACHE [None]
  - PROTEIN URINE PRESENT [None]
